FAERS Safety Report 24136481 (Version 1)
Quarter: 2024Q3

REPORT INFORMATION
  Report Type: Spontaneous
  Country: BR (occurrence: BR)
  Receive Date: 20240725
  Receipt Date: 20240725
  Transmission Date: 20241016
  Serious: Yes (Death, Hospitalization)
  Sender: RANBAXY
  Company Number: BR-SUN PHARMACEUTICAL INDUSTRIES LTD-2024R1-457459

PATIENT
  Age: 56 Year
  Sex: Female
  Weight: 85 kg

DRUGS (1)
  1. CAPECITABINE [Suspect]
     Active Substance: CAPECITABINE
     Indication: Small intestine carcinoma
     Dosage: 4 TABLETS, BID (8 TABLETS DAILY)
     Route: 048
     Dates: start: 20240607, end: 20240620

REACTIONS (4)
  - Toxicity to various agents [Fatal]
  - Hypersensitivity [Fatal]
  - Vomiting [Fatal]
  - Diarrhoea [Fatal]

NARRATIVE: CASE EVENT DATE: 20240601
